FAERS Safety Report 13310189 (Version 1)
Quarter: 2017Q1

REPORT INFORMATION
  Report Type: Spontaneous
  Country: US (occurrence: US)
  Receive Date: 20170309
  Receipt Date: 20170309
  Transmission Date: 20170428
  Serious: No
  Sender: FDA-Public Use
  Company Number: None

PATIENT
  Age: 88 Year
  Sex: Female
  Weight: 52.16 kg

DRUGS (5)
  1. LEVOFLOXACIN 250MG TABLETS [Suspect]
     Active Substance: LEVOFLOXACIN
     Indication: RESPIRATORY TRACT INFECTION
     Dosage: ?          QUANTITY:L METER;?
     Route: 048
     Dates: start: 20160824, end: 20160826
  2. SIMVASTATIN. [Concomitant]
     Active Substance: SIMVASTATIN
  3. LEVOTHYROXINE. [Concomitant]
     Active Substance: LEVOTHYROXINE
  4. PREVACID [Concomitant]
     Active Substance: LANSOPRAZOLE
  5. CARVEDILOL. [Concomitant]
     Active Substance: CARVEDILOL

REACTIONS (5)
  - Peripheral swelling [None]
  - Decreased appetite [None]
  - Gait disturbance [None]
  - Dysstasia [None]
  - Weight increased [None]

NARRATIVE: CASE EVENT DATE: 20160826
